FAERS Safety Report 24391982 (Version 1)
Quarter: 2024Q4

REPORT INFORMATION
  Report Type: Spontaneous
  Country: US (occurrence: None)
  Receive Date: 20241002
  Receipt Date: 20241002
  Transmission Date: 20250114
  Serious: No
  Sender: Public
  Company Number: None

PATIENT
  Age: 47 Year
  Sex: Male
  Weight: 90 kg

DRUGS (1)
  1. IBUPROFEN [Suspect]
     Active Substance: IBUPROFEN
     Indication: Pain
     Dosage: OTHER FREQUENCY : OTHER;?
     Route: 048

REACTIONS (6)
  - Diarrhoea [None]
  - Fatigue [None]
  - Palpitations [None]
  - Dizziness [None]
  - Gastrointestinal haemorrhage [None]
  - Gastrointestinal ulcer [None]

NARRATIVE: CASE EVENT DATE: 20240302
